FAERS Safety Report 12501214 (Version 1)
Quarter: 2016Q2

REPORT INFORMATION
  Report Type: Report from Study
  Country: US (occurrence: US)
  Receive Date: 20160627
  Receipt Date: 20160627
  Transmission Date: 20160815
  Serious: No
  Sender: FDA-Public Use
  Company Number: US-CELGENEUS-USA-2016064827

PATIENT

DRUGS (1)
  1. REVLIMID [Suspect]
     Active Substance: LENALIDOMIDE
     Indication: MYELODYSPLASTIC SYNDROME
     Route: 048

REACTIONS (5)
  - Neutropenia [Unknown]
  - Performance status decreased [Unknown]
  - Anaemia [Unknown]
  - Myelodysplastic syndrome [Unknown]
  - Thrombocytopenia [Unknown]
